FAERS Safety Report 5534495-7 (Version None)
Quarter: 2007Q4

REPORT INFORMATION
  Report Type: 
  Country: None (occurrence: None)
  Receive Date: 20071205
  Receipt Date: 20071203
  Transmission Date: 20080405
  Serious: Yes (Other)
  Sender: FDA-Public Use
  Company Number: NL-BRISTOL-MYERS SQUIBB COMPANY-14003255

PATIENT
  Sex: Female

DRUGS (8)
  1. EFAVIRENZ [Suspect]
     Indication: HIV INFECTION
     Route: 064
  2. STAVUDINE [Suspect]
     Indication: HIV INFECTION
     Route: 064
  3. DIDANOSINE [Suspect]
     Indication: HIV INFECTION
     Route: 064
  4. LOPINAVIR [Suspect]
     Indication: ANTIVIRAL PROPHYLAXIS
     Dosage: ALSO EXPOSED TRANSPLACENTALLY.
  5. RITONAVIR [Suspect]
     Indication: ANTIVIRAL PROPHYLAXIS
     Dosage: ALSO EXPOSED TRANSPLACENTALLY.
  6. ZIDOVUDINE [Suspect]
     Indication: ANTIVIRAL PROPHYLAXIS
     Dosage: ALSO EXPOSED TRANSPLACENTALLY.
  7. TENOFOVIR DISOPROXIL FUMARATE [Suspect]
     Indication: HIV INFECTION
     Route: 064
  8. LAMIVUDINE [Suspect]
     Indication: ANTIVIRAL PROPHYLAXIS
     Dosage: ALSO EXPOSED TRANSPLACENTALLY.

REACTIONS (2)
  - ATRIOVENTRICULAR BLOCK COMPLETE [None]
  - CARDIOMYOPATHY [None]
